FAERS Safety Report 6421336-9 (Version None)
Quarter: 2009Q4

REPORT INFORMATION
  Report Type: 
  Country: None (occurrence: None)
  Receive Date: 20091030
  Receipt Date: 20091020
  Transmission Date: 20100525
  Serious: Yes (Hospitalization, Other)
  Sender: FDA-Public Use
  Company Number: PHEH2009US14139

PATIENT

DRUGS (1)
  1. TEKTURNA [Suspect]
     Dosage: UNK, UNK

REACTIONS (1)
  - HAEMOLYTIC ANAEMIA [None]
